FAERS Safety Report 6353058-7 (Version None)
Quarter: 2009Q3

REPORT INFORMATION
  Report Type: 
  Country: None (occurrence: None)
  Receive Date: 20090912
  Receipt Date: 20090622
  Transmission Date: 20100115
  Serious: No
  Sender: FDA-Public Use
  Company Number: US-ABBOTT-08P-163-0453798-00

PATIENT
  Sex: Female
  Weight: 53.572 kg

DRUGS (21)
  1. HUMIRA [Suspect]
     Indication: CROHN'S DISEASE
     Route: 058
     Dates: start: 20080527, end: 20080527
  2. HUMIRA [Suspect]
     Indication: RHEUMATOID ARTHRITIS
     Route: 050
     Dates: start: 20080609
  3. HUMIRA [Suspect]
  4. PREDNISONE [Suspect]
     Indication: CROHN'S DISEASE
     Route: 048
     Dates: start: 19940101
  5. PREDNISONE [Suspect]
     Indication: INFLAMMATION
  6. LEVOTHYROXINE SODIUM [Concomitant]
     Indication: HORMONE REPLACEMENT THERAPY
     Route: 048
     Dates: start: 19710101
  7. ESOMEPRAZOLE MAGNESIUM [Concomitant]
     Indication: GASTRIC DISORDER
     Route: 048
     Dates: start: 19980101
  8. CYANOCOBALAMIN-TANNIN COMPLEX [Concomitant]
     Indication: PERNICIOUS ANAEMIA
     Route: 050
     Dates: start: 20010101
  9. ATORVASTATIN CALCIUM [Concomitant]
     Indication: BLOOD CHOLESTEROL
     Route: 048
     Dates: start: 20080301
  10. IRON [Concomitant]
     Indication: ANAEMIA
     Route: 048
     Dates: start: 20080301
  11. ALENDRONATE SODIUM [Concomitant]
     Indication: OSTEOPOROSIS PROPHYLAXIS
     Route: 048
     Dates: start: 20080201
  12. CALCIUM [Concomitant]
     Indication: MINERAL SUPPLEMENTATION
     Route: 048
     Dates: start: 20080201
  13. HYOSCYAMINE SULFATE [Concomitant]
     Indication: ABDOMINAL PAIN
     Route: 060
     Dates: start: 20020101
  14. ESTRADIOL [Concomitant]
     Indication: HYSTERECTOMY
     Route: 062
     Dates: start: 19730101
  15. VALIUM [Concomitant]
     Indication: MIGRAINE
     Dosage: 2-3 PILLS AS NEEDED
     Route: 048
  16. PHENERGAN [Concomitant]
     Indication: HEADACHE
     Route: 048
  17. PHENERGAN [Concomitant]
     Indication: NAUSEA
  18. FIORNAL #3 [Concomitant]
     Indication: MIGRAINE
     Dosage: 1 TABLET EVERY 4-6 HOURS, 1-2 AS NEEDED
     Route: 048
     Dates: start: 19630101
  19. FIORNAL #3 [Concomitant]
     Indication: PAIN
  20. SERTRALINE HCL [Concomitant]
     Indication: DEPRESSION
     Route: 048
  21. SERTRALINE HCL [Concomitant]
     Route: 048

REACTIONS (7)
  - DRUG INEFFECTIVE [None]
  - FALL [None]
  - INCORRECT DOSE ADMINISTERED [None]
  - INJECTION SITE HAEMATOMA [None]
  - INJECTION SITE PAIN [None]
  - UPPER LIMB FRACTURE [None]
  - WRONG TECHNIQUE IN DRUG USAGE PROCESS [None]
